FAERS Safety Report 9858338 (Version 1)
Quarter: 2014Q1

REPORT INFORMATION
  Report Type: Spontaneous
  Country: DE (occurrence: None)
  Receive Date: 20140129
  Receipt Date: 20140129
  Transmission Date: 20141002
  Serious: Yes (Other)
  Sender: FDA-Public Use
  Company Number: 1401-0157

PATIENT
  Sex: Female

DRUGS (2)
  1. EYLEA [Suspect]
     Indication: AGE-RELATED MACULAR DEGENERATION
     Route: 031
     Dates: start: 2013
  2. DIETARY SUPPLEMENTS [Concomitant]

REACTIONS (3)
  - Visual field defect [None]
  - Foreign body sensation in eyes [None]
  - Therapeutic product ineffective [None]
